FAERS Safety Report 13858771 (Version 1)
Quarter: 2017Q3

REPORT INFORMATION
  Report Type: Spontaneous
  Country: US (occurrence: US)
  Receive Date: 20170811
  Receipt Date: 20170811
  Transmission Date: 20171127
  Serious: No
  Sender: FDA-Public Use
  Company Number: US-PERRIGO-16US020285

PATIENT
  Age: 62 Year
  Sex: Male
  Weight: 90.7 kg

DRUGS (6)
  1. LORATADINE. [Suspect]
     Active Substance: LORATADINE
     Indication: EAR CONGESTION
  2. SUDAFED [Concomitant]
     Active Substance: PSEUDOEPHEDRINE HYDROCHLORIDE
     Indication: PARANASAL SINUS DISCOMFORT
     Dosage: UNK
     Route: 048
     Dates: start: 20160911
  3. SUDAFED [Concomitant]
     Active Substance: PSEUDOEPHEDRINE HYDROCHLORIDE
     Indication: OTORRHOEA
  4. SUDAFED [Concomitant]
     Active Substance: PSEUDOEPHEDRINE HYDROCHLORIDE
     Indication: EAR CONGESTION
  5. LORATADINE. [Suspect]
     Active Substance: LORATADINE
     Indication: OTORRHOEA
  6. LORATADINE. [Suspect]
     Active Substance: LORATADINE
     Indication: PARANASAL SINUS DISCOMFORT
     Dosage: 10 MG, QD
     Route: 048
     Dates: start: 20160911, end: 20160913

REACTIONS (7)
  - Hypersensitivity [Recovering/Resolving]
  - Skin exfoliation [Recovering/Resolving]
  - Erythema [Recovering/Resolving]
  - Blister [Recovering/Resolving]
  - Swelling face [Recovering/Resolving]
  - Rash [Recovering/Resolving]
  - Off label use [Recovered/Resolved]

NARRATIVE: CASE EVENT DATE: 20160911
